FAERS Safety Report 10404020 (Version 1)
Quarter: 2014Q1

REPORT INFORMATION
  Report Type: Spontaneous
  Country: US (occurrence: None)
  Receive Date: 20131018
  Receipt Date: 20131018
  Transmission Date: 20141002
  Serious: No
  Sender: FDA-Public Use
  Company Number: AEGR000049

PATIENT
  Age: 31 Year
  Sex: Male
  Weight: 83.9 kg

DRUGS (5)
  1. JUXTAPID (LOMITAPIDE) CAPSULE, 5MG [Suspect]
     Indication: TYPE IIA HYPERLIPIDAEMIA
     Route: 048
     Dates: start: 20130329, end: 2013
  2. ASPIRIN (ACETYLSALICYLIC ACID) [Concomitant]
  3. CRESTOR (ROSUVASTATIN CALCIUM) [Concomitant]
  4. NIASPAN (NICOTINIC ACID) [Concomitant]
  5. ZETIA (EZETIMIBE) [Concomitant]

REACTIONS (5)
  - Feeling abnormal [None]
  - Memory impairment [None]
  - Somnolence [None]
  - Hypersomnia [None]
  - Malaise [None]
